FAERS Safety Report 6129915-3 (Version None)
Quarter: 2009Q1

REPORT INFORMATION
  Report Type: 
  Country: None (occurrence: None)
  Receive Date: 20090323
  Receipt Date: 20090323
  Transmission Date: 20090719
  Serious: Yes (Other)
  Sender: FDA-Public Use
  Company Number: None

PATIENT
  Age: 28 Year
  Sex: Female
  Weight: 72.5755 kg

DRUGS (2)
  1. CYMBALTA [Suspect]
     Indication: DEPRESSION
     Dosage: 1 60 MG 1 TIME DAILY PO
     Route: 048
     Dates: start: 20081201, end: 20090322
  2. CYMBALTA [Suspect]
     Indication: FIBROMYALGIA
     Dosage: 1 60 MG 1 TIME DAILY PO
     Route: 048
     Dates: start: 20081201, end: 20090322

REACTIONS (5)
  - ABASIA [None]
  - DRUG DOSE OMISSION [None]
  - FEELING ABNORMAL [None]
  - MALAISE [None]
  - PARAESTHESIA [None]
